FAERS Safety Report 5659282-0 (Version None)
Quarter: 2008Q1

REPORT INFORMATION
  Report Type: 
  Country: None (occurrence: None)
  Receive Date: 20080311
  Receipt Date: 20070619
  Transmission Date: 20080703
  Serious: No
  Sender: FDA-Public Use
  Company Number: US-BAYER-200711963BCC

PATIENT
  Age: 79 Year
  Sex: Female
  Weight: 64 kg

DRUGS (8)
  1. ALEVE [Suspect]
     Indication: NEUROPATHY PERIPHERAL
     Dosage: UNIT DOSE: 220 MG
     Route: 048
     Dates: start: 20061201
  2. TOPROL [Concomitant]
  3. AMITRIPTYLINE HCL [Concomitant]
  4. LEVOTHYROXINE SODIUM [Concomitant]
  5. CYMBALTA [Concomitant]
  6. LISINOPRIL [Concomitant]
  7. PROPRANOLOL [Concomitant]
  8. PRILOSEC [Concomitant]

REACTIONS (1)
  - ABDOMINAL PAIN UPPER [None]
